FAERS Safety Report 25995566 (Version 1)
Quarter: 2025Q4

REPORT INFORMATION
  Report Type: Spontaneous
  Country: IN (occurrence: IN)
  Receive Date: 20251104
  Receipt Date: 20251104
  Transmission Date: 20260118
  Serious: Yes (Other)
  Sender: Haleon PLC
  Company Number: IN-002147023-NVSC2025IN167185

PATIENT
  Age: 45 Year
  Sex: Female

DRUGS (1)
  1. DICLOFENAC [Suspect]
     Active Substance: DICLOFENAC
     Indication: Product used for unknown indication
     Dosage: UNK?ROA: UNKNOWN

REACTIONS (7)
  - AGEP-DRESS overlap [Recovering/Resolving]
  - Pustule [Recovering/Resolving]
  - Pyrexia [Recovering/Resolving]
  - Skin plaque [Recovering/Resolving]
  - Face oedema [Recovering/Resolving]
  - Skin burning sensation [Recovering/Resolving]
  - Mucosal haemorrhage [Recovering/Resolving]
